FAERS Safety Report 9276806 (Version 1)
Quarter: 2013Q2

REPORT INFORMATION
  Report Type: Spontaneous
  Country: US (occurrence: US)
  Receive Date: 20130507
  Receipt Date: 20130507
  Transmission Date: 20140414
  Serious: No
  Sender: FDA-Public Use
  Company Number: US-ASTRAZENECA-2013SE25244

PATIENT
  Sex: 0

DRUGS (5)
  1. SEROQUEL XR [Suspect]
     Route: 048
  2. SEROQUEL XR [Suspect]
     Route: 048
     Dates: start: 20130319
  3. ZOLOFT [Concomitant]
  4. XANAX [Concomitant]
  5. RISPERDOL [Concomitant]

REACTIONS (4)
  - Myalgia [Unknown]
  - Nausea [Unknown]
  - Disturbance in attention [Unknown]
  - Activities of daily living impaired [Unknown]
